FAERS Safety Report 16418831 (Version 2)
Quarter: 2019Q2

REPORT INFORMATION
  Report Type: Spontaneous
  Country: US (occurrence: US)
  Receive Date: 20190612
  Receipt Date: 20190618
  Transmission Date: 20190711
  Serious: Yes (Other)
  Sender: FDA-Public Use
  Company Number: US-AUROBINDO-AUR-APL-2017-38149

PATIENT

DRUGS (2)
  1. ZOLEDRONIC ACID INJECTION [Suspect]
     Active Substance: ZOLEDRONIC ACID
     Indication: ANGIOSARCOMA
     Dosage: 4MG MAX, PATIENT COMPLETED 27 ZA INFUSIONS
     Route: 065
  2. SIROLIMUS. [Suspect]
     Active Substance: SIROLIMUS
     Indication: ANGIOSARCOMA
     Dosage: LEVEL 8- 12NG/ML
     Route: 065

REACTIONS (4)
  - Pyrexia [Recovered/Resolved]
  - Mucosal inflammation [Recovered/Resolved]
  - Bone pain [Recovered/Resolved]
  - Osteomyelitis [Recovered/Resolved]
